FAERS Safety Report 13333467 (Version 1)
Quarter: 2017Q1

REPORT INFORMATION
  Report Type: Spontaneous
  Country: US (occurrence: US)
  Receive Date: 20170314
  Receipt Date: 20170314
  Transmission Date: 20170428
  Serious: No
  Sender: FDA-Public Use
  Company Number: US-TEVA-737089ACC

PATIENT
  Sex: Male
  Weight: 102 kg

DRUGS (1)
  1. ENOXAPARIN SODIUM INJECTION, USP 60MG/0.6ML [Suspect]
     Active Substance: ENOXAPARIN SODIUM
     Indication: COAGULOPATHY

REACTIONS (3)
  - Incorrect product storage [Unknown]
  - Drug ineffective [Unknown]
  - Drug level below therapeutic [None]
